FAERS Safety Report 6306723-1 (Version None)
Quarter: 2009Q3

REPORT INFORMATION
  Report Type: 
  Country: None (occurrence: None)
  Receive Date: 20090812
  Receipt Date: 20090727
  Transmission Date: 20100115
  Serious: No
  Sender: FDA-Public Use
  Company Number: A0790136A

PATIENT
  Age: 58 Year
  Sex: Female
  Weight: 59.1 kg

DRUGS (13)
  1. VERAMYST [Suspect]
     Dosage: 2SPR PER DAY
     Route: 045
     Dates: start: 20080701, end: 20090501
  2. STEROIDS [Suspect]
     Indication: DRUG USE FOR UNKNOWN INDICATION
     Route: 055
  3. SINGULAIR [Concomitant]
  4. GUAIFENESIN [Concomitant]
  5. CLARINEX [Concomitant]
  6. SUDAFED 12 HOUR [Concomitant]
  7. FLEXERIL [Concomitant]
  8. LEVOXYL [Concomitant]
  9. LEXAPRO [Concomitant]
  10. FISH OIL [Concomitant]
  11. CALCIUM [Concomitant]
  12. PEPCID [Concomitant]
  13. PREVACID [Concomitant]

REACTIONS (4)
  - CANDIDIASIS [None]
  - DIARRHOEA [None]
  - FLATULENCE [None]
  - NAUSEA [None]
